FAERS Safety Report 8379978-X (Version None)
Quarter: 2012Q2

REPORT INFORMATION
  Report Type: 
  Country: None (occurrence: None)
  Receive Date: 20120523
  Receipt Date: 20120509
  Transmission Date: 20120825
  Serious: Yes (Hospitalization, Other)
  Sender: FDA-Public Use
  Company Number: US-ELI_LILLY_AND_COMPANY-US201203000165

PATIENT
  Age: 48 Year
  Sex: Female

DRUGS (1)
  1. CYMBALTA [Suspect]
     Indication: BACK PAIN
     Dosage: UNK, UNKNOWN
     Dates: start: 20110601, end: 20120302

REACTIONS (13)
  - LOSS OF CONSCIOUSNESS [None]
  - SPEECH DISORDER [None]
  - CRYING [None]
  - DIZZINESS [None]
  - FATIGUE [None]
  - BLOOD PRESSURE DECREASED [None]
  - MALAISE [None]
  - ASTHENIA [None]
  - DYSGEUSIA [None]
  - SUICIDAL IDEATION [None]
  - BREAST SWELLING [None]
  - SWOLLEN TONGUE [None]
  - LETHARGY [None]
